FAERS Safety Report 16366598 (Version 2)
Quarter: 2019Q3

REPORT INFORMATION
  Report Type: Spontaneous
  Country: AT (occurrence: AT)
  Receive Date: 20190529
  Receipt Date: 20190814
  Transmission Date: 20191004
  Serious: Yes (Other)
  Sender: FDA-Public Use
  Company Number: AT-ROCHE-2298991

PATIENT
  Age: 79 Year
  Sex: Female

DRUGS (14)
  1. OXALIPLATIN. [Suspect]
     Active Substance: OXALIPLATIN
     Indication: ADENOCARCINOMA OF COLON
     Route: 065
     Dates: start: 201711, end: 201801
  2. 5-FU [FLUOROURACIL] [Suspect]
     Active Substance: FLUOROURACIL
     Indication: ADENOCARCINOMA OF COLON
     Dosage: 2ND LINE TREATMENT STARTED WITH FLUOROURACIL: JAN/2018.
     Route: 065
     Dates: start: 201711
  3. TIPIRACIL [Concomitant]
     Active Substance: TIPIRACIL
  4. AFLIBERCEPT [Suspect]
     Active Substance: AFLIBERCEPT
     Indication: METASTASIS
     Route: 065
     Dates: start: 201801
  5. TRIFLURIDINE. [Concomitant]
     Active Substance: TRIFLURIDINE
  6. LEUCOVORIN [FOLINIC ACID] [Suspect]
     Active Substance: LEUCOVORIN
     Indication: METASTASIS
  7. 5-FU [FLUOROURACIL] [Suspect]
     Active Substance: FLUOROURACIL
     Indication: METASTASIS
  8. 5-FU [FLUOROURACIL] [Concomitant]
     Active Substance: FLUOROURACIL
     Indication: ADENOCARCINOMA OF COLON
     Route: 042
  9. BEVACIZUMAB. [Suspect]
     Active Substance: BEVACIZUMAB
     Indication: METASTASIS
  10. OXALIPLATIN. [Suspect]
     Active Substance: OXALIPLATIN
     Indication: METASTASIS
  11. LEUCOVORIN [FOLINIC ACID] [Suspect]
     Active Substance: LEUCOVORIN
     Indication: ADENOCARCINOMA OF COLON
     Dosage: 2ND LINE TREATMENT STARTED WITH LEUCOVORIN: JAN/2018 FLUOROURACIL AND IRINOTECAN HYDROCHOLRIDE (FOLF
     Route: 065
     Dates: start: 201711, end: 201801
  12. XELODA [Suspect]
     Active Substance: CAPECITABINE
     Indication: ADENOCARCINOMA OF COLON
     Dosage: DOSE REDUCED AND SUBSEQUENTLY WITHDRAWN
     Route: 065
     Dates: start: 2012, end: 2012
  13. BEVACIZUMAB. [Suspect]
     Active Substance: BEVACIZUMAB
     Indication: ADENOCARCINOMA OF COLON
     Route: 065
     Dates: start: 201711, end: 201801
  14. IRINOTECAN HYDROCHLORIDE. [Suspect]
     Active Substance: IRINOTECAN HYDROCHLORIDE
     Indication: METASTASIS
     Route: 065
     Dates: start: 201801

REACTIONS (5)
  - Neutropenia [Recovered/Resolved]
  - Diarrhoea [Unknown]
  - Pneumonia [Unknown]
  - Transient ischaemic attack [Recovered/Resolved]
  - Clostridium difficile infection [Recovered/Resolved]

NARRATIVE: CASE EVENT DATE: 2012
